FAERS Safety Report 4981317-9 (Version None)
Quarter: 2006Q2

REPORT INFORMATION
  Report Type: 
  Country: None (occurrence: None)
  Receive Date: 20060424
  Receipt Date: 20050414
  Transmission Date: 20061013
  Serious: Yes (Hospitalization)
  Sender: FDA-Public Use
  Company Number: US-MERCK-0504USA02310

PATIENT
  Age: 64 Year
  Sex: Male
  Weight: 96 kg

DRUGS (3)
  1. VIOXX [Suspect]
     Route: 048
     Dates: start: 20000816
  2. VIOXX [Suspect]
     Route: 048
     Dates: start: 20010807
  3. VIOXX [Suspect]
     Route: 048

REACTIONS (4)
  - CARDIAC ANEURYSM [None]
  - CARDIAC DISORDER [None]
  - INJURY [None]
  - MYOCARDIAL INFARCTION [None]
